FAERS Safety Report 10647257 (Version 3)
Quarter: 2015Q1

REPORT INFORMATION
  Report Type: Spontaneous
  Country: US (occurrence: US)
  Receive Date: 20141211
  Receipt Date: 20150312
  Transmission Date: 20150720
  Serious: Yes (Other)
  Sender: FDA-Public Use
  Company Number: US-INCYTE CORPORATION-2014IN002233

PATIENT
  Age: 80 Year
  Sex: Male

DRUGS (8)
  1. JAKAFI [Suspect]
     Active Substance: RUXOLITINIB
     Indication: MYELOFIBROSIS
     Dosage: 10 MG DAILY, MONDAY
     Route: 048
     Dates: start: 20120901, end: 20141015
  2. JAKAFI [Suspect]
     Active Substance: RUXOLITINIB
     Dosage: 10 MG, QD M-F
     Route: 048
  3. JAKAFI [Suspect]
     Active Substance: RUXOLITINIB
     Dosage: 10 MG, QD
     Route: 048
     Dates: start: 20131009
  4. BABY ASPIRIN [Concomitant]
     Active Substance: ASPIRIN
  5. ZOCOR [Concomitant]
     Active Substance: SIMVASTATIN
  6. KEPPRA [Concomitant]
     Active Substance: LEVETIRACETAM
  7. ARANESP [Concomitant]
     Active Substance: DARBEPOETIN ALFA
     Dosage: WEEKLY
     Route: 058
  8. JAKAFI [Suspect]
     Active Substance: RUXOLITINIB
     Dosage: 10 MG, QD M-F
     Route: 048
     Dates: start: 20140820, end: 20141015

REACTIONS (6)
  - Gastric disorder [Unknown]
  - Malaise [Unknown]
  - White blood cell count decreased [Unknown]
  - Abdominal pain upper [Unknown]
  - Red blood cell count decreased [Unknown]
  - Anaemia [Unknown]

NARRATIVE: CASE EVENT DATE: 20141015
